FAERS Safety Report 15074063 (Version 2)
Quarter: 2019Q3

REPORT INFORMATION
  Report Type: Spontaneous
  Country: GB (occurrence: GB)
  Receive Date: 20180627
  Receipt Date: 20190819
  Transmission Date: 20191004
  Serious: Yes (Other)
  Sender: FDA-Public Use
  Company Number: GB-TEVA-2018-GB-912202

PATIENT
  Age: 62 Year
  Sex: Female
  Weight: 70.76 kg

DRUGS (6)
  1. TURMERIC [Suspect]
     Active Substance: HERBALS\TURMERIC
     Route: 048
     Dates: start: 20171215, end: 20180120
  2. CO-DYDRAMOL [Concomitant]
     Active Substance: ACETAMINOPHEN\DIHYDROCODEINE
     Route: 065
  3. TEVA UK LANSOPRAZOLE [Suspect]
     Active Substance: LANSOPRAZOLE
     Indication: HERNIA
     Route: 048
     Dates: start: 20171225, end: 20180120
  4. PARACETAMOL [Concomitant]
     Active Substance: ACETAMINOPHEN
     Route: 065
     Dates: start: 20180117, end: 20180119
  5. NAPROXEN. [Suspect]
     Active Substance: NAPROXEN
     Indication: ARTHRITIS
     Dosage: PRESCRIBED 500MG TWICE DAILY BUT I TOOK ONLY ONCE DAILY
     Route: 048
     Dates: start: 20180117, end: 20180120
  6. TURMERIC [Suspect]
     Active Substance: HERBALS\TURMERIC
     Indication: ARTHRITIS
     Route: 048

REACTIONS (6)
  - Flatulence [Recovering/Resolving]
  - Hypoaesthesia [Recovered/Resolved]
  - Constipation [Recovered/Resolved]
  - Headache [Recovered/Resolved]
  - Sleep disorder [Recovered/Resolved with Sequelae]
  - Nausea [Recovered/Resolved]

NARRATIVE: CASE EVENT DATE: 20180117
